FAERS Safety Report 8225043-1 (Version None)
Quarter: 2012Q1

REPORT INFORMATION
  Report Type: 
  Country: None (occurrence: None)
  Receive Date: 20120321
  Receipt Date: 20120316
  Transmission Date: 20120608
  Serious: Yes (Hospitalization, Other)
  Sender: FDA-Public Use
  Company Number: US-BAYER-2011-111976

PATIENT
  Age: 21 Year
  Sex: Female
  Weight: 113.38 kg

DRUGS (3)
  1. PRILOSEC [Concomitant]
     Indication: ABDOMINAL DISCOMFORT
     Dosage: UNK
     Dates: start: 20100101, end: 20110101
  2. YAZ [Suspect]
     Dosage: UNK
     Dates: start: 20071001, end: 20080301
  3. ZOLOFT [Concomitant]
     Indication: DEPRESSION
     Dosage: UNK
     Dates: start: 20050101, end: 20110101

REACTIONS (9)
  - GASTRIC DISORDER [None]
  - ANHEDONIA [None]
  - GALLBLADDER INJURY [None]
  - INJURY [None]
  - PAIN [None]
  - ANXIETY [None]
  - GENERAL PHYSICAL HEALTH DETERIORATION [None]
  - EMOTIONAL DISTRESS [None]
  - INTRA-ABDOMINAL HAEMORRHAGE [None]
